FAERS Safety Report 10253203 (Version 1)
Quarter: 2014Q2

REPORT INFORMATION
  Report Type: Spontaneous
  Country: US (occurrence: None)
  Receive Date: 20140619
  Receipt Date: 20140619
  Transmission Date: 20141212
  Serious: Yes (Life-Threatening)
  Sender: FDA-Public Use
  Company Number: None

PATIENT
  Age: 48 Year
  Sex: Female
  Weight: 47.63 kg

DRUGS (13)
  1. TACROLIMUS [Suspect]
     Indication: LUNG TRANSPLANT
     Dosage: TWO PILLS TWICE DAILY ORAL
     Route: 048
     Dates: start: 20140505, end: 20140522
  2. PREDNISONE [Concomitant]
  3. METOPROLOL [Concomitant]
  4. CELLCEPT [Concomitant]
  5. AMLODIPINE [Concomitant]
  6. CALCIUM [Concomitant]
  7. MAGNESIUM [Concomitant]
  8. MIRTAZAPINE [Concomitant]
  9. ACYCLOVIR [Concomitant]
  10. PANTOPRAZOLE [Concomitant]
  11. AZITHROMICIN [Concomitant]
  12. DOCUSATE [Concomitant]
  13. SULFAMETHOXAZOLE [Concomitant]

REACTIONS (3)
  - Laboratory test abnormal [None]
  - Product substitution issue [None]
  - Product quality issue [None]
